FAERS Safety Report 8362103-9 (Version None)
Quarter: 2012Q2

REPORT INFORMATION
  Report Type: 
  Country: None (occurrence: None)
  Receive Date: 20120515
  Receipt Date: 20120515
  Transmission Date: 20120825
  Serious: Yes (Hospitalization)
  Sender: FDA-Public Use
  Company Number: CN-ABBOTT-12P-035-0917548-00

PATIENT
  Age: 44 Year
  Sex: Male

DRUGS (5)
  1. GANCICLOVIR [Concomitant]
     Indication: PRODUCT USED FOR UNKNOWN INDICATION
     Route: 042
     Dates: start: 20110408, end: 20110412
  2. ALL OTHER THERAPEUTIC PRODUCTS [Concomitant]
     Indication: PRODUCT USED FOR UNKNOWN INDICATION
     Dates: start: 20110408, end: 20110412
  3. VALPROATE SODIUM [Suspect]
     Dosage: 500 MG DAILY
     Route: 048
     Dates: start: 20110413, end: 20110416
  4. VALPROATE SODIUM [Suspect]
     Indication: EPILEPSY
     Dosage: DAILY
     Route: 042
     Dates: start: 20110408, end: 20110412
  5. PIPERACILLIN [Concomitant]
     Indication: PRODUCT USED FOR UNKNOWN INDICATION
     Route: 042
     Dates: start: 20110408, end: 20110412

REACTIONS (5)
  - PERINEAL ERYTHEMA [None]
  - CUTIS LAXA [None]
  - ERYTHEMA [None]
  - RASH GENERALISED [None]
  - STEVENS-JOHNSON SYNDROME [None]
